FAERS Safety Report 9912031 (Version 1)
Quarter: 2014Q1

REPORT INFORMATION
  Report Type: Report from Study
  Country: BR (occurrence: BR)
  Receive Date: 20140219
  Receipt Date: 20140219
  Transmission Date: 20141002
  Serious: Yes (Death, Hospitalization, Other)
  Sender: FDA-Public Use
  Company Number: BR-US-EMD SERONO, INC.-7270237

PATIENT
  Sex: Female

DRUGS (3)
  1. REBIF [Suspect]
     Indication: MULTIPLE SCLEROSIS
     Dates: start: 20091101, end: 20120820
  2. REBIF [Suspect]
     Dates: start: 20121212, end: 20140103
  3. VASOPRIL                           /00574902/ [Concomitant]
     Indication: PRODUCT USED FOR UNKNOWN INDICATION

REACTIONS (7)
  - Septic shock [Fatal]
  - Pneumonia [Fatal]
  - Brain injury [Unknown]
  - Coma [Unknown]
  - Convulsion [Unknown]
  - Urinary tract infection [Unknown]
  - Pyrexia [Unknown]
